FAERS Safety Report 7403849-6 (Version None)
Quarter: 2011Q2

REPORT INFORMATION
  Report Type: 
  Country: None (occurrence: None)
  Receive Date: 20110408
  Receipt Date: 20110401
  Transmission Date: 20111010
  Serious: Yes (Life-Threatening, Hospitalization)
  Sender: FDA-Public Use
  Company Number: US-TEVA-260634USA

PATIENT
  Sex: Male
  Weight: 65.9 kg

DRUGS (15)
  1. CETUXIMAB [Suspect]
     Route: 042
  2. CETUXIMAB [Suspect]
     Route: 042
     Dates: start: 20101213, end: 20101213
  3. CISPLATIN [Suspect]
     Indication: HEAD AND NECK CANCER
     Route: 042
     Dates: start: 20101018, end: 20101018
  4. DEXAMETHASONE [Concomitant]
     Indication: PROPHYLAXIS
     Route: 048
  5. FLUOROURACIL [Suspect]
     Indication: HEAD AND NECK CANCER
     Route: 042
     Dates: start: 20101018, end: 20101213
  6. FLUOROURACIL [Suspect]
     Route: 042
     Dates: start: 20101210, end: 20101210
  7. CETUXIMAB [Suspect]
     Route: 042
  8. PROCHLORPERAZINE EDISYLATE [Concomitant]
     Indication: PROPHYLAXIS
     Dates: start: 20101029
  9. CISPLATIN [Suspect]
     Route: 042
  10. APREPITANT [Concomitant]
     Indication: PROPHYLAXIS
     Route: 042
     Dates: start: 20101018
  11. LOPERAMIDE HYDROCHLORIDE [Concomitant]
     Dates: start: 20101029
  12. PARACETAMOL [Concomitant]
     Indication: PROPHYLAXIS
     Dates: start: 20101029
  13. FLUOROURACIL [Suspect]
     Route: 042
  14. CETUXIMAB [Suspect]
     Indication: HEAD AND NECK CANCER
     Route: 042
     Dates: start: 20101018, end: 20101206
  15. CISPLATIN [Suspect]
     Route: 042
     Dates: start: 20101206, end: 20101206

REACTIONS (3)
  - PLATELET COUNT DECREASED [None]
  - INTESTINAL ISCHAEMIA [None]
  - NEUTROPHIL COUNT DECREASED [None]
